FAERS Safety Report 7369074-2 (Version None)
Quarter: 2011Q1

REPORT INFORMATION
  Report Type: 
  Country: None (occurrence: None)
  Receive Date: 20110323
  Receipt Date: 20110308
  Transmission Date: 20110831
  Serious: Yes (Other)
  Sender: FDA-Public Use
  Company Number: IN-GENENTECH-315482

PATIENT
  Age: 28 Year
  Sex: Female

DRUGS (1)
  1. LUCENTIS [Suspect]
     Indication: CHOROIDAL NEOVASCULARISATION

REACTIONS (4)
  - DRUG EXPOSURE DURING PREGNANCY [None]
  - VISUAL ACUITY REDUCED [None]
  - CHORIORETINAL DISORDER [None]
  - ABORTION SPONTANEOUS [None]
